FAERS Safety Report 10249168 (Version 1)
Quarter: 2014Q2

REPORT INFORMATION
  Report Type: Spontaneous
  Country: GB (occurrence: GB)
  Receive Date: 20140620
  Receipt Date: 20140620
  Transmission Date: 20141212
  Serious: Yes (Life-Threatening)
  Sender: FDA-Public Use
  Company Number: ALCN2014GB003482

PATIENT
  Age: 30 Year
  Sex: Female

DRUGS (1)
  1. FLUORESCEIN SODIUM [Suspect]
     Indication: ANGIOGRAM
     Dosage: 4 ML, ONCE/SINGLE
     Route: 042
     Dates: start: 20140527, end: 20140527

REACTIONS (1)
  - Pruritus [Recovered/Resolved]
